APPROVED DRUG PRODUCT: HYDROCORTISONE VALERATE
Active Ingredient: HYDROCORTISONE VALERATE
Strength: 0.2%
Dosage Form/Route: CREAM;TOPICAL
Application: A075042 | Product #001 | TE Code: AB
Applicant: SUN PHARMA CANADA INC
Approved: Aug 25, 1998 | RLD: No | RS: Yes | Type: RX